FAERS Safety Report 9514206 (Version 1)
Quarter: 2013Q3

REPORT INFORMATION
  Report Type: Spontaneous
  Country: US (occurrence: US)
  Receive Date: 20130910
  Receipt Date: 20130910
  Transmission Date: 20140515
  Serious: No
  Sender: FDA-Public Use
  Company Number: US-SANOFI-AVENTIS-BMS18890293

PATIENT
  Age: 70 Year
  Sex: Female

DRUGS (3)
  1. AVAPRO [Suspect]
     Indication: BLOOD PRESSURE
     Dosage: HAD BEEN ON FOR 2 YEARS AND RESTARTED ABOUT 1 WEEKS AGO.
  2. IRBESARTAN [Suspect]
     Indication: BLOOD PRESSURE
     Dates: start: 20130421
  3. CLARITIN [Concomitant]

REACTIONS (1)
  - Rash [Unknown]
